FAERS Safety Report 4903646-7 (Version None)
Quarter: 2006Q1

REPORT INFORMATION
  Report Type: 
  Country: None (occurrence: None)
  Receive Date: 20060202
  Receipt Date: 20060120
  Transmission Date: 20060701
  Serious: Yes (Death, Life-Threatening, Hospitalization, Other)
  Sender: FDA-Public Use
  Company Number: 2005171926

PATIENT
  Age: 77 Year
  Sex: Female
  Weight: 90 kg

DRUGS (2)
  1. AZULFIDINE [Suspect]
     Indication: RHEUMATOID ARTHRITIS
     Dosage: DAILY, ORAL
     Route: 048
     Dates: start: 20050927, end: 20050101
  2. MARCUMAR [Concomitant]

REACTIONS (6)
  - DYSARTHRIA [None]
  - EYE SWELLING [None]
  - FALL [None]
  - LACERATION [None]
  - OCULAR HYPERAEMIA [None]
  - TOXIC EPIDERMAL NECROLYSIS [None]
